FAERS Safety Report 10216855 (Version 1)
Quarter: 2014Q2

REPORT INFORMATION
  Report Type: Spontaneous
  Country: IT (occurrence: IT)
  Receive Date: 20140604
  Receipt Date: 20140604
  Transmission Date: 20141212
  Serious: Yes (Other)
  Sender: FDA-Public Use
  Company Number: IT-WATSON-2014-11496

PATIENT
  Age: 25 Year
  Sex: Male

DRUGS (5)
  1. CARBAMAZEPINE (UNKNOWN) [Suspect]
     Indication: EPILEPSY
     Dosage: 200 MG, TID
     Route: 065
  2. DEXAMETHASONE (UNKNOWN) [Interacting]
     Indication: 21-HYDROXYLASE DEFICIENCY
     Dosage: 0.50 MG, DAILY
     Route: 065
  3. DEXAMETHASONE (UNKNOWN) [Interacting]
     Indication: ADRENOGENITAL SYNDROME
  4. FLUDROCORTISONE [Interacting]
     Indication: 21-HYDROXYLASE DEFICIENCY
     Dosage: UP TO 0.1 MG/DAY
     Route: 065
  5. FLUDROCORTISONE [Interacting]
     Indication: ADRENOGENITAL SYNDROME

REACTIONS (2)
  - Adrenal insufficiency [Recovered/Resolved]
  - Inhibitory drug interaction [Unknown]
